FAERS Safety Report 23769774 (Version 1)
Quarter: 2024Q2

REPORT INFORMATION
  Report Type: Spontaneous
  Country: ES (occurrence: ES)
  Receive Date: 20240422
  Receipt Date: 20240422
  Transmission Date: 20240716
  Serious: Yes (Other)
  Sender: FDA-Public Use
  Company Number: ES-PURDUE-USA-2024-0309153

PATIENT
  Age: 86 Year
  Sex: Male

DRUGS (2)
  1. MORPHINE SULFATE [Interacting]
     Active Substance: MORPHINE SULFATE
     Indication: Product used for unknown indication
     Dosage: 30 MILLIGRAM, Q12H
     Route: 048
     Dates: start: 202402, end: 20240213
  2. MORPHINE SULFATE [Interacting]
     Active Substance: MORPHINE SULFATE
     Dosage: 10 MILLIGRAM,AS NECESSARY
     Route: 048
     Dates: start: 202402, end: 20240213

REACTIONS (3)
  - Hallucination [Recovered/Resolved]
  - Myoclonus [Recovered/Resolved]
  - Wrong dose [Recovered/Resolved]

NARRATIVE: CASE EVENT DATE: 20240201
